FAERS Safety Report 12976992 (Version 1)
Quarter: 2016Q4

REPORT INFORMATION
  Report Type: Spontaneous
  Country: US (occurrence: US)
  Receive Date: 20161128
  Receipt Date: 20161128
  Transmission Date: 20170207
  Serious: No
  Sender: FDA-Public Use
  Company Number: US-LUPIN PHARMACEUTICALS INC.-E2B_00006106

PATIENT
  Age: 21 Year
  Sex: Male

DRUGS (2)
  1. AZITHROMYCIN TABLETS USP, 250 MG TEVA [Suspect]
     Active Substance: AZITHROMYCIN ANHYDROUS
     Indication: PHARYNGITIS
     Route: 048
     Dates: start: 20160826, end: 20160826
  2. AZITHROMYCIN TABLETS USP, 250 MG TEVA [Suspect]
     Active Substance: AZITHROMYCIN ANHYDROUS
     Route: 048
     Dates: start: 20160827, end: 20160827

REACTIONS (3)
  - Peripheral swelling [Not Recovered/Not Resolved]
  - Ear swelling [Not Recovered/Not Resolved]
  - Swelling face [Not Recovered/Not Resolved]

NARRATIVE: CASE EVENT DATE: 20160828
